FAERS Safety Report 9206111 (Version 2)
Quarter: 2013Q3

REPORT INFORMATION
  Report Type: Spontaneous
  Country: US (occurrence: None)
  Receive Date: 20120709
  Receipt Date: 20130724
  Transmission Date: 20140515
  Serious: Yes (Other)
  Sender: FDA-Public Use
  Company Number: PHHY2010US45912

PATIENT
  Age: 46 Year
  Sex: Female

DRUGS (9)
  1. GLEEVEC (IMATINIB) UNKNOWN [Suspect]
     Indication: GASTROINTESTINAL CARCINOMA
     Route: 048
     Dates: start: 200808
  2. SYNTHROID (LEVOTYROXINE SODIUM) [Concomitant]
  3. PROMETHAZINE (PROMETHAZINE) [Concomitant]
  4. KLONOPIN (CLONAZEPAM) (TABLETS) [Concomitant]
  5. ATIVAN (LORASEPAM) [Concomitant]
  6. EXCEDRIN (CAFFEINE, PARACTAMOL) [Concomitant]
  7. MIRALAX [Concomitant]
  8. CASCARA SAGRADA (CASCARA, RHAMNUS PURSHIANA) [Concomitant]
  9. LORTAB (HYDROCODONE BITARTRATE, PARACETAMOL) [Concomitant]

REACTIONS (16)
  - Swollen tongue [None]
  - Burning sensation [None]
  - Vomiting [None]
  - Nausea [None]
  - Asthenia [None]
  - Bone pain [None]
  - Muscle spasms [None]
  - Migraine [None]
  - Oedema [None]
  - Eye swelling [None]
  - Fatigue [None]
  - Decreased appetite [None]
  - Amnesia [None]
  - Neoplasm [None]
  - Convulsion [None]
  - Malignant neoplasm progression [None]
